FAERS Safety Report 7691605 (Version 3)
Quarter: 2016Q1

REPORT INFORMATION
  Report Type: Spontaneous
  Country: US (occurrence: US)
  Receive Date: 20101203
  Receipt Date: 20160107
  Transmission Date: 20160526
  Serious: Yes (Hospitalization, Disabling, Other)
  Sender: FDA-Public Use
  Company Number: US-PFIZER INC-2010160558

PATIENT
  Age: 52 Year
  Sex: Male

DRUGS (1)
  1. CHANTIX [Suspect]
     Active Substance: VARENICLINE TARTRATE
     Indication: SMOKING CESSATION THERAPY
     Dosage: 1 MG, 1X/DAY
     Dates: start: 200807, end: 200811

REACTIONS (10)
  - Delusion [Unknown]
  - Loss of consciousness [Unknown]
  - Paranoia [Unknown]
  - Seizure [Not Recovered/Not Resolved]
  - Amnesia [Not Recovered/Not Resolved]
  - Coma [Unknown]
  - Acute kidney injury [Unknown]
  - Back injury [Not Recovered/Not Resolved]
  - Thinking abnormal [Unknown]
  - Hypersensitivity [Not Recovered/Not Resolved]

NARRATIVE: CASE EVENT DATE: 2008
